FAERS Safety Report 17080465 (Version 1)
Quarter: 2019Q4

REPORT INFORMATION
  Report Type: Spontaneous
  Country: US (occurrence: US)
  Receive Date: 20191029
  Receipt Date: 20191029
  Transmission Date: 20200122
  Serious: No
  Sender: FDA-Public Use
  Company Number: None

PATIENT
  Sex: Female

DRUGS (5)
  1. OCALIVA [Suspect]
     Active Substance: OBETICHOLIC ACID
     Indication: PRIMARY BILIARY CHOLANGITIS
     Route: 048
     Dates: start: 20190817
  2. FAMOTIDINE. [Concomitant]
     Active Substance: FAMOTIDINE
  3. FUROSEMIDE. [Concomitant]
     Active Substance: FUROSEMIDE
  4. UPSODIOL [Concomitant]
  5. POT CL MICRO [Concomitant]

REACTIONS (2)
  - Eye discharge [None]
  - Vision blurred [None]
